FAERS Safety Report 8515668-8 (Version None)
Quarter: 2012Q3

REPORT INFORMATION
  Report Type: 
  Country: None (occurrence: None)
  Receive Date: 20120717
  Receipt Date: 20120711
  Transmission Date: 20120928
  Serious: Yes (Other)
  Sender: FDA-Public Use
  Company Number: PHEH2011US010931

PATIENT
  Sex: Female

DRUGS (2)
  1. VITAMIN D [Concomitant]
     Indication: HYPOVITAMINOSIS
     Dosage: 400 IU, UNK
     Route: 048
     Dates: start: 20100101
  2. GILENYA [Suspect]
     Indication: MULTIPLE SCLEROSIS
     Dosage: 0.5 MG, QD
     Route: 048
     Dates: start: 20111128

REACTIONS (5)
  - DIZZINESS [None]
  - FATIGUE [None]
  - CHEST DISCOMFORT [None]
  - PARAESTHESIA [None]
  - OPTIC NEURITIS [None]
